FAERS Safety Report 5288064-7 (Version None)
Quarter: 2007Q2

REPORT INFORMATION
  Report Type: 
  Country: None (occurrence: None)
  Receive Date: 20070405
  Receipt Date: 20070403
  Transmission Date: 20071010
  Serious: Yes (Hospitalization)
  Sender: FDA-Public Use
  Company Number: FR-BRISTOL-MYERS SQUIBB COMPANY-13469762

PATIENT
  Age: 44 Year
  Sex: Female
  Weight: 80 kg

DRUGS (4)
  1. COAPROVEL FILM-COATED TABS [Suspect]
     Indication: ESSENTIAL HYPERTENSION
     Route: 048
     Dates: start: 20050101, end: 20060708
  2. INDOCID [Suspect]
     Indication: ARTHROPATHY
     Route: 048
     Dates: start: 20060415, end: 20060708
  3. EUPANTOL [Suspect]
     Indication: ARTHROPATHY
     Route: 048
     Dates: start: 20060415, end: 20060708
  4. TOPALGIC LP [Suspect]
     Indication: ARTHROPATHY
     Route: 048
     Dates: start: 20060415, end: 20060708

REACTIONS (3)
  - ANGIOEDEMA [None]
  - EOSINOPHILIA [None]
  - HEPATITIS [None]
